FAERS Safety Report 23995567 (Version 1)
Quarter: 2024Q2

REPORT INFORMATION
  Report Type: Spontaneous
  Country: US (occurrence: None)
  Receive Date: 20240619
  Receipt Date: 20240619
  Transmission Date: 20240715
  Serious: Yes (Hospitalization)
  Sender: FDA-Public Use
  Company Number: None

PATIENT
  Sex: Female

DRUGS (3)
  1. NYVEPRIA [Suspect]
     Active Substance: PEGFILGRASTIM-APGF
     Dosage: 0.42MLS  EVERY 21 DAYS INTO THE SKIN?
     Route: 058
     Dates: start: 202401
  2. NYVEPRIA [Concomitant]
     Active Substance: PEGFILGRASTIM-APGF
  3. CABOMETYX [Concomitant]
     Active Substance: CABOZANTINIB S-MALATE

REACTIONS (4)
  - Eating disorder [None]
  - Nausea [None]
  - Asthenia [None]
  - Therapy interrupted [None]
